FAERS Safety Report 23160588 (Version 2)
Quarter: 2024Q1

REPORT INFORMATION
  Report Type: Report from Study
  Country: US (occurrence: US)
  Receive Date: 20231108
  Receipt Date: 20240116
  Transmission Date: 20240409
  Serious: Yes (Hospitalization, Other)
  Sender: FDA-Public Use
  Company Number: US-ALXN-A202206362

PATIENT
  Age: 33 Year
  Sex: Male
  Weight: 71 kg

DRUGS (12)
  1. SOLIRIS [Suspect]
     Active Substance: ECULIZUMAB
     Indication: Atypical haemolytic uraemic syndrome
     Dosage: 1200 MG, Q2W
     Route: 042
     Dates: start: 20140805, end: 201510
  2. LACTULOSE [Concomitant]
     Active Substance: LACTULOSE
     Indication: Constipation
     Dosage: UNK, 10 DOSE PER ADMINISTRATION
     Route: 048
     Dates: start: 20210322, end: 20210401
  3. SEVELAMER [Concomitant]
     Active Substance: SEVELAMER
     Indication: Chronic kidney disease-mineral and bone disorder
     Dosage: 1600 MG, QID (PILL)
     Route: 048
     Dates: start: 20210422
  4. SEVELAMER [Concomitant]
     Active Substance: SEVELAMER
     Indication: Hyperphosphataemia
  5. WARFARIN [Concomitant]
     Active Substance: WARFARIN
     Indication: Anticoagulant therapy
     Dosage: 5 MG, QD
     Route: 048
     Dates: start: 20210406
  6. NYSTATIN [Concomitant]
     Active Substance: NYSTATIN
     Indication: Cystitis
     Dosage: 100000 IU, SINGLE, (LIQUID)
     Route: 042
     Dates: start: 20210322, end: 20210331
  7. HEPARIN [Concomitant]
     Active Substance: HEPARIN SODIUM
     Indication: Anticoagulant therapy
     Dosage: 5000 IU, QD
     Route: 042
     Dates: start: 20210324, end: 20210403
  8. RETACRIT                           /00928305/ [Concomitant]
     Indication: Anaemia
     Dosage: 6500 IU, SINGLE
     Route: 058
     Dates: start: 20210325, end: 20210325
  9. CEFTAROLINE FOSAMIL [Concomitant]
     Active Substance: CEFTAROLINE FOSAMIL
     Indication: Cystitis
     Dosage: 200 MG, QD (LIQUID)
     Route: 042
     Dates: start: 20210331, end: 20210419
  10. LISINOPRIL [Concomitant]
     Active Substance: LISINOPRIL
     Indication: Hypertension
     Dosage: 20 MG/M2, QD
     Route: 048
     Dates: start: 20151020, end: 20210323
  11. LABETALOL [Concomitant]
     Active Substance: LABETALOL\LABETALOL HYDROCHLORIDE
     Indication: Hypertension
     Dosage: 200 MG, BID
     Route: 048
     Dates: start: 20210323
  12. AMLODIPINE [Concomitant]
     Active Substance: AMLODIPINE BESYLATE
     Indication: Hypertension
     Dosage: 5 MG, QD
     Route: 048
     Dates: start: 20210409, end: 20210412

REACTIONS (10)
  - Staphylococcal sepsis [Recovered/Resolved]
  - Azotaemia [Recovered/Resolved]
  - Mental status changes [Recovered/Resolved]
  - Hyperkalaemia [Recovered/Resolved]
  - Metabolic acidosis [Recovered/Resolved]
  - Pulmonary oedema [Recovered/Resolved]
  - Respiratory failure [Recovered/Resolved]
  - Staphylococcal bacteraemia [Recovered/Resolved]
  - Cystitis [Recovered/Resolved]
  - Sepsis [Recovered/Resolved]

NARRATIVE: CASE EVENT DATE: 20190614
